FAERS Safety Report 8471664-0 (Version None)
Quarter: 2012Q2

REPORT INFORMATION
  Report Type: 
  Country: None (occurrence: None)
  Receive Date: 20120621
  Receipt Date: 20120607
  Transmission Date: 20120825
  Serious: Yes (Life-Threatening, Hospitalization)
  Sender: FDA-Public Use
  Company Number: 12-461

PATIENT
  Sex: Female

DRUGS (3)
  1. ZOMIG [Suspect]
     Dates: start: 20050101
  2. LISINOPRIL [Suspect]
     Dates: start: 20080101
  3. NAPROXEN SODIUM [Suspect]

REACTIONS (3)
  - BLOOD PRESSURE INCREASED [None]
  - OEDEMA PERIPHERAL [None]
  - TRANSIENT ISCHAEMIC ATTACK [None]
